FAERS Safety Report 6141324-X (Version None)
Quarter: 2009Q2

REPORT INFORMATION
  Report Type: 
  Country: None (occurrence: None)
  Receive Date: 20090401
  Receipt Date: 20090401
  Transmission Date: 20091009
  Serious: Yes (Other)
  Sender: FDA-Public Use
  Company Number: None

PATIENT
  Age: 26 Year
  Sex: Female
  Weight: 68.0396 kg

DRUGS (4)
  1. LEXAPRO [Suspect]
     Indication: ANXIETY
     Dosage: 5MG/5ML 1 PER DAY PO
     Route: 048
     Dates: start: 20081115, end: 20081222
  2. LEXAPRO [Suspect]
     Indication: STRESS
     Dosage: 5MG/5ML 1 PER DAY PO
     Route: 048
     Dates: start: 20081115, end: 20081222
  3. LEXAPRO [Suspect]
     Indication: ANXIETY
     Dosage: 5MG/5ML 1 PER DAY PO
     Route: 048
     Dates: start: 20090203, end: 20090303
  4. LEXAPRO [Suspect]
     Indication: STRESS
     Dosage: 5MG/5ML 1 PER DAY PO
     Route: 048
     Dates: start: 20090203, end: 20090303

REACTIONS (5)
  - ASTHENIA [None]
  - DISTURBANCE IN ATTENTION [None]
  - EDUCATIONAL PROBLEM [None]
  - EXERCISE TOLERANCE DECREASED [None]
  - THERAPY CESSATION [None]
